FAERS Safety Report 9390441 (Version 1)
Quarter: 2013Q3

REPORT INFORMATION
  Report Type: Report from Study
  Country: MX (occurrence: MX)
  Receive Date: 20130709
  Receipt Date: 20130709
  Transmission Date: 20140515
  Serious: Yes (Death)
  Sender: FDA-Public Use
  Company Number: MX-ROCHE-1245882

PATIENT
  Sex: Male

DRUGS (1)
  1. XELODA [Suspect]
     Indication: GASTRIC CANCER
     Dosage: FREQUENCY: DURING 14 DAYS FOLLOWED BY 7 DAYS REST
     Route: 048
     Dates: start: 20121019

REACTIONS (1)
  - Death [Fatal]
